FAERS Safety Report 5236039-6 (Version None)
Quarter: 2007Q1

REPORT INFORMATION
  Report Type: 
  Country: None (occurrence: None)
  Receive Date: 20070212
  Receipt Date: 20070130
  Transmission Date: 20070707
  Serious: Yes (Hospitalization)
  Sender: FDA-Public Use
  Company Number: ES-ELI_LILLY_AND_COMPANY-ES200702000017

PATIENT
  Age: 73 Year
  Sex: Female

DRUGS (2)
  1. FORTEO [Suspect]
     Dosage: 20 UG, DAILY (1/D)
     Route: 058
     Dates: start: 20061101
  2. CALCIUM [Concomitant]

REACTIONS (5)
  - DIZZINESS [None]
  - FALL [None]
  - PELVIC FRACTURE [None]
  - PERITONEAL EFFUSION [None]
  - PLEURAL EFFUSION [None]
